FAERS Safety Report 7361170-9 (Version None)
Quarter: 2011Q1

REPORT INFORMATION
  Report Type: 
  Country: None (occurrence: None)
  Receive Date: 20110318
  Receipt Date: 20110309
  Transmission Date: 20110831
  Serious: Yes (Other)
  Sender: FDA-Public Use
  Company Number: IE-MEDIMMUNE-MEDI-0012861

PATIENT
  Sex: Male

DRUGS (3)
  1. CAFFEINE [Concomitant]
  2. SYNAGIS [Suspect]
     Route: 030
     Dates: start: 20110210, end: 20110210
  3. KAPSOVIT [Concomitant]

REACTIONS (1)
  - BRONCHIOLITIS [None]
